FAERS Safety Report 10285815 (Version 1)
Quarter: 2014Q3

REPORT INFORMATION
  Report Type: Spontaneous
  Country: US (occurrence: None)
  Receive Date: 20140703
  Receipt Date: 20140703
  Transmission Date: 20150326
  Serious: Yes (Life-Threatening, Disabling, Other)
  Sender: FDA-Public Use
  Company Number: None

PATIENT
  Age: 44 Year
  Sex: Male
  Weight: 107.96 kg

DRUGS (17)
  1. COUMADIN [Concomitant]
     Active Substance: WARFARIN SODIUM
  2. VITAMIN D [Concomitant]
     Active Substance: CHOLECALCIFEROL
  3. NOSELVIST [Concomitant]
  4. METOPROLOL [Concomitant]
     Active Substance: METOPROLOL
  5. ALLOPCIPEAL [Concomitant]
  6. RAUS COLOLA [Concomitant]
  7. LISINOPRIL. [Concomitant]
     Active Substance: LISINOPRIL
  8. CANG GLASSES COLESLOROL [Concomitant]
  9. ALLOPCUPIREAL [Concomitant]
  10. LATUDA [Suspect]
     Active Substance: LURASIDONE HYDROCHLORIDE
     Indication: ANXIETY
     Dosage: 1 PILL AT DINNER?
     Route: 048
     Dates: start: 20140619, end: 20140622
  11. LIPITOR [Concomitant]
     Active Substance: ATORVASTATIN CALCIUM
  12. L-PAPMDINE [Concomitant]
  13. LATUDA [Suspect]
     Active Substance: LURASIDONE HYDROCHLORIDE
     Indication: MAJOR DEPRESSION
     Dosage: 1 PILL AT DINNER?
     Route: 048
     Dates: start: 20140619, end: 20140622
  14. REUS OINTMIT [Concomitant]
  15. ARDREGEL LOPOMIDE [Concomitant]
  16. HYDROXYZONE [Concomitant]
  17. TYLENOL [Concomitant]
     Active Substance: ACETAMINOPHEN

REACTIONS (21)
  - Agitation [None]
  - Vision blurred [None]
  - Nipple disorder [None]
  - Tremor [None]
  - Confusional state [None]
  - Dysphonia [None]
  - Restlessness [None]
  - Pyrexia [None]
  - Pollakiuria [None]
  - Irritability [None]
  - Depression [None]
  - Suicidal ideation [None]
  - Hunger [None]
  - Anxiety [None]
  - Aggression [None]
  - Abnormal behaviour [None]
  - Diarrhoea [None]
  - Fatigue [None]
  - Affective disorder [None]
  - Logorrhoea [None]
  - Abdominal pain upper [None]

NARRATIVE: CASE EVENT DATE: 20140619
